FAERS Safety Report 15743564 (Version 3)
Quarter: 2019Q2

REPORT INFORMATION
  Report Type: Spontaneous
  Country: US (occurrence: US)
  Receive Date: 20181220
  Receipt Date: 20190506
  Transmission Date: 20190711
  Serious: No
  Sender: FDA-Public Use
  Company Number: US-PFIZER INC-2018522997

PATIENT
  Age: 48 Year
  Sex: Female

DRUGS (5)
  1. TAXOTERE [Suspect]
     Active Substance: DOCETAXEL
     Indication: HER-2 POSITIVE BREAST CANCER
     Dosage: UNK
     Dates: start: 20131122, end: 20140122
  2. TAXOTERE [Suspect]
     Active Substance: DOCETAXEL
     Dosage: 147 MG, CYCLIC (7 CYCLES, EVERY 3 WEEKS)
     Dates: start: 20131211, end: 20140311
  3. DOCETAXEL. [Suspect]
     Active Substance: DOCETAXEL
     Dosage: 147 MG, CYCLIC (7 CYCLES, EVERY 3 WEEKS)
     Dates: start: 20131211, end: 20140311
  4. PARAPLATIN [Concomitant]
     Active Substance: CARBOPLATIN
     Indication: CHEMOTHERAPY
     Dosage: 750 MG, UNK
  5. DOCETAXEL. [Suspect]
     Active Substance: DOCETAXEL
     Indication: HER-2 POSITIVE BREAST CANCER
     Dosage: UNK
     Dates: start: 20131122, end: 20140122

REACTIONS (5)
  - Alopecia [Not Recovered/Not Resolved]
  - Hair disorder [Not Recovered/Not Resolved]
  - Madarosis [Not Recovered/Not Resolved]
  - Hair texture abnormal [Not Recovered/Not Resolved]
  - Hair colour changes [Not Recovered/Not Resolved]

NARRATIVE: CASE EVENT DATE: 20131211
